FAERS Safety Report 20738588 (Version 1)
Quarter: 2022Q2

REPORT INFORMATION
  Report Type: Spontaneous
  Country: BR (occurrence: BR)
  Receive Date: 20220422
  Receipt Date: 20220422
  Transmission Date: 20220721
  Serious: Yes (Death, Other)
  Sender: FDA-Public Use
  Company Number: BR-AMGEN-BRASP2022056618

PATIENT
  Sex: Female

DRUGS (1)
  1. BLINCYTO [Suspect]
     Active Substance: BLINATUMOMAB
     Indication: Disease recurrence
     Dosage: UNK
     Route: 065
     Dates: start: 20220324

REACTIONS (8)
  - Death [Fatal]
  - Seizure [Unknown]
  - Thrombocytopenia [Unknown]
  - Skin plaque [Not Recovered/Not Resolved]
  - Blood glucose increased [Recovered/Resolved]
  - Rash erythematous [Not Recovered/Not Resolved]
  - Tachycardia [Unknown]
  - Hypotension [Unknown]

NARRATIVE: CASE EVENT DATE: 20220324
